FAERS Safety Report 6401313-4 (Version None)
Quarter: 2009Q4

REPORT INFORMATION
  Report Type: 
  Country: None (occurrence: None)
  Receive Date: 20091015
  Receipt Date: 20070703
  Transmission Date: 20100525
  Serious: Yes (Disabling)
  Sender: FDA-Public Use
  Company Number: US-ASTRAZENECA-2006UW07713

PATIENT
  Sex: Female
  Weight: 83.5 kg

DRUGS (11)
  1. SEROQUEL [Suspect]
     Dosage: 50-300 MG
     Route: 048
     Dates: start: 20050415
  2. FLEXERIL [Concomitant]
     Route: 048
  3. ZANTAC [Concomitant]
     Route: 048
  4. CLARITIN [Concomitant]
     Route: 048
  5. ABILIFY [Concomitant]
     Route: 048
  6. HYDROCHLOROTHIAZIDE [Concomitant]
     Route: 048
  7. LORAZEPAM [Concomitant]
     Dosage: 1 MG 4 HRS PRN
     Route: 048
  8. MALOX EX-STRENGTH SUSP [Concomitant]
     Indication: GASTRIC DISORDER
     Dosage: 15 ML QID PRN
     Route: 048
  9. MILK OF MAGNESIA SUSP [Concomitant]
     Indication: CONSTIPATION
     Route: 048
  10. IBUPROFEN [Concomitant]
     Indication: ANALGESIC THERAPY
  11. VICODIN [Concomitant]
     Indication: ANALGESIC THERAPY

REACTIONS (7)
  - ARTHROPOD STING [None]
  - DYSPHAGIA [None]
  - HYPERTENSION [None]
  - ILL-DEFINED DISORDER [None]
  - INJURY [None]
  - NECK PAIN [None]
  - PHARYNGITIS [None]
